FAERS Safety Report 21315090 (Version 3)
Quarter: 2022Q4

REPORT INFORMATION
  Report Type: Spontaneous
  Country: DE (occurrence: DE)
  Receive Date: 20220909
  Receipt Date: 20221006
  Transmission Date: 20230113
  Serious: Yes (Other)
  Sender: FDA-Public Use
  Company Number: DE-TEVA-2022-DE-2070008

PATIENT
  Age: 67 Year
  Sex: Female
  Weight: 72 kg

DRUGS (3)
  1. AJOVY [Suspect]
     Active Substance: FREMANEZUMAB-VFRM
     Indication: Migraine
     Dosage: THE LAST INJECTION TOOK PLACE AT THE END OF JUL-2022
     Route: 058
     Dates: start: 202109
  2. AJOVY [Suspect]
     Active Substance: FREMANEZUMAB-VFRM
     Route: 065
     Dates: start: 202108, end: 202112
  3. DEVICE [Suspect]
     Active Substance: DEVICE
     Indication: Product used for unknown indication
     Route: 065

REACTIONS (15)
  - Rheumatoid arthritis [Unknown]
  - Depression suicidal [Recovered/Resolved]
  - Myalgia [Not Recovered/Not Resolved]
  - Arthralgia [Not Recovered/Not Resolved]
  - Migraine [Not Recovered/Not Resolved]
  - Constipation [Unknown]
  - Therapeutic response shortened [Unknown]
  - Injection site eczema [Recovered/Resolved]
  - Hypersensitivity [Unknown]
  - Rash [Unknown]
  - Nasopharyngitis [Recovered/Resolved]
  - Personality change [Recovered/Resolved]
  - Muscle strain [Unknown]
  - Gait disturbance [Unknown]
  - Transaminases increased [Unknown]

NARRATIVE: CASE EVENT DATE: 20210801
